FAERS Safety Report 6740581-6 (Version None)
Quarter: 2010Q2

REPORT INFORMATION
  Report Type: 
  Country: None (occurrence: None)
  Receive Date: 20100525
  Receipt Date: 20100511
  Transmission Date: 20101027
  Serious: Yes (Hospitalization)
  Sender: FDA-Public Use
  Company Number: US-MYLANLABS-2010S1008270

PATIENT
  Age: 16 Year
  Sex: Female

DRUGS (1)
  1. GUANFACINE HYDROCHLORIDE [Suspect]
     Indication: TOURETTE'S DISORDER
     Route: 048

REACTIONS (3)
  - HYPERTENSION [None]
  - INTENTIONAL OVERDOSE [None]
  - ORTHOSTATIC HYPOTENSION [None]
